FAERS Safety Report 8585966-0 (Version None)
Quarter: 2012Q3

REPORT INFORMATION
  Report Type: 
  Country: None (occurrence: None)
  Receive Date: 20120810
  Receipt Date: 20120803
  Transmission Date: 20120928
  Serious: Yes (Other)
  Sender: FDA-Public Use
  Company Number: CA-ROCHE-1038401

PATIENT
  Sex: Female

DRUGS (5)
  1. PULMICORT [Concomitant]
  2. XOLAIR [Suspect]
     Dates: start: 20120104
  3. NASONEX [Concomitant]
  4. VENTOLIN [Concomitant]
  5. XOLAIR [Suspect]
     Indication: ASTHMA
     Route: 058
     Dates: start: 20111123, end: 20120104

REACTIONS (10)
  - INJECTION SITE OEDEMA [None]
  - INJECTION SITE PRURITUS [None]
  - INJECTION SITE SWELLING [None]
  - BACK PAIN [None]
  - HEADACHE [None]
  - NASAL CONGESTION [None]
  - EYE SWELLING [None]
  - HYPERSENSITIVITY [None]
  - INJECTION SITE PAIN [None]
  - INJECTION SITE ERYTHEMA [None]
